FAERS Safety Report 5985965-9 (Version None)
Quarter: 2008Q4

REPORT INFORMATION
  Report Type: 
  Country: None (occurrence: None)
  Receive Date: 20081205
  Receipt Date: 20081205
  Transmission Date: 20090506
  Serious: Yes (Hospitalization)
  Sender: FDA-Public Use
  Company Number: None

PATIENT
  Age: 75 Year
  Sex: Male
  Weight: 90 kg

DRUGS (8)
  1. TEMOZOLOMIDE [Suspect]
     Indication: GLIOBLASTOMA MULTIFORME
     Dosage: 155MG DAILY X 47 DAYS PO
     Route: 048
     Dates: start: 20080820, end: 20081003
  2. BEVACIZUMAB [Suspect]
     Indication: GLIOBLASTOMA MULTIFORME
     Dosage: 900MG Q 2 WEEKS IV
     Route: 042
     Dates: end: 20080820
  3. BACTRIM DS [Concomitant]
  4. PYRIDIUM [Concomitant]
  5. METOPROLOL [Concomitant]
  6. HYDROCHLOROTHIAZIDE [Concomitant]
  7. KEPPRA [Concomitant]
  8. TEMODAR [Concomitant]

REACTIONS (5)
  - ATAXIA [None]
  - CEREBRAL HAEMATOMA [None]
  - CONFUSIONAL STATE [None]
  - MENTAL STATUS CHANGES [None]
  - URINARY TRACT INFECTION [None]
